FAERS Safety Report 9456893 (Version 1)
Quarter: 2013Q3

REPORT INFORMATION
  Report Type: Spontaneous
  Country: US (occurrence: None)
  Receive Date: 20130809
  Receipt Date: 20130809
  Transmission Date: 20140515
  Serious: Yes (Congenital Anomaly)
  Sender: FDA-Public Use
  Company Number: POI0573201300018

PATIENT
  Sex: 0

DRUGS (1)
  1. VENLAFAXINE EXTENDED-RELEASE TABLETS [Suspect]

REACTIONS (2)
  - Cleft palate [None]
  - Maternal drugs affecting foetus [None]
